FAERS Safety Report 11110120 (Version 1)
Quarter: 2015Q2

REPORT INFORMATION
  Report Type: Spontaneous
  Country: US (occurrence: US)
  Receive Date: 20150513
  Receipt Date: 20150513
  Transmission Date: 20150821
  Serious: No
  Sender: FDA-Public Use
  Company Number: US-BAYER-2015-218680

PATIENT
  Age: 10 Year
  Sex: Female

DRUGS (2)
  1. FLINTSTONES TODDLER CHEWABLE TABLET COMBI [Concomitant]
     Dosage: UNK
  2. MIRALAX [Suspect]
     Active Substance: POLYETHYLENE GLYCOL 3350
     Indication: CONSTIPATION
     Dosage: UNK
     Route: 048
     Dates: start: 20150425

REACTIONS (3)
  - Off label use [Unknown]
  - Off label use [None]
  - Off label use [Unknown]

NARRATIVE: CASE EVENT DATE: 20150425
